FAERS Safety Report 7982919-8 (Version None)
Quarter: 2011Q4

REPORT INFORMATION
  Report Type: 
  Country: None (occurrence: None)
  Receive Date: 20111215
  Receipt Date: 20111208
  Transmission Date: 20120403
  Serious: Yes (Other)
  Sender: FDA-Public Use
  Company Number: PHHY2011US107248

PATIENT
  Age: 58 Year
  Sex: Male

DRUGS (7)
  1. SIMVACOR [Concomitant]
     Dosage: UNK
  2. SOTALOL HCL [Concomitant]
     Dosage: 160 MG, BID
  3. FLECAINIDE ACETATE [Suspect]
     Dosage: 150 MG, BID
  4. FLECAINIDE ACETATE [Suspect]
     Dosage: 100 MG, BID
  5. FLECAINIDE ACETATE [Suspect]
     Indication: ATRIAL FIBRILLATION
     Dosage: 50 MG, BID
  6. FLECAINIDE ACETATE [Suspect]
     Dosage: 150 MG, BID
  7. FLECAINIDE ACETATE [Suspect]
     Dosage: 600 MG, UNK

REACTIONS (4)
  - DRUG INEFFECTIVE [None]
  - OVERDOSE [None]
  - ELECTROCARDIOGRAM ABNORMAL [None]
  - ATRIAL FLUTTER [None]
